FAERS Safety Report 15449857 (Version 1)
Quarter: 2018Q4

REPORT INFORMATION
  Report Type: Spontaneous
  Country: US (occurrence: US)
  Receive Date: 20181001
  Receipt Date: 20181001
  Transmission Date: 20190204
  Serious: Yes (Other)
  Sender: FDA-Public Use
  Company Number: US-DRREDDYS-USA/USA/18/0104316

PATIENT
  Age: 32 Year
  Sex: Female

DRUGS (4)
  1. LAMOTRIGINE EXTENDED RELEASE TABLETS [Suspect]
     Active Substance: LAMOTRIGINE
     Route: 065
     Dates: start: 20180605, end: 20180714
  2. LAMOTRIGINE EXTENDED RELEASE TABLETS [Suspect]
     Active Substance: LAMOTRIGINE
     Indication: EPILEPSY
     Route: 065
     Dates: start: 20180208, end: 20180415
  3. LAMOTRIGINE EXTENDED RELEASE TABLETS [Suspect]
     Active Substance: LAMOTRIGINE
     Route: 065
     Dates: start: 20180715, end: 20180828
  4. LAMOTRIGINE EXTENDED RELEASE TABLETS [Suspect]
     Active Substance: LAMOTRIGINE
     Route: 065
     Dates: start: 20180416, end: 20180604

REACTIONS (2)
  - Stillbirth [Unknown]
  - Exposure during pregnancy [Unknown]
